FAERS Safety Report 8716364 (Version 3)
Quarter: 2013Q4

REPORT INFORMATION
  Report Type: Report from Study
  Country: US (occurrence: US)
  Receive Date: 20120810
  Receipt Date: 20131106
  Transmission Date: 20140711
  Serious: Yes (Hospitalization, Other)
  Sender: FDA-Public Use
  Company Number: US-009507513-1208USA003536

PATIENT
  Sex: Female

DRUGS (2)
  1. PEGINTRON [Suspect]
     Indication: CHRONIC HEPATITIS C
     Dosage: UNK
     Route: 058
     Dates: start: 20120726, end: 20120802
  2. REBETOL [Suspect]
     Indication: CHRONIC HEPATITIS C
     Dosage: UNK
     Dates: start: 20120726, end: 20120802

REACTIONS (7)
  - Head injury [Unknown]
  - Convulsion [Unknown]
  - Amnesia [Unknown]
  - Asthenia [Unknown]
  - Feeling hot [Unknown]
  - Asthenia [Unknown]
  - Chills [Unknown]
